FAERS Safety Report 26097382 (Version 1)
Quarter: 2025Q4

REPORT INFORMATION
  Report Type: Spontaneous
  Country: US (occurrence: US)
  Receive Date: 20251127
  Receipt Date: 20251127
  Transmission Date: 20260117
  Serious: No
  Sender: BAUSCH AND LOMB
  Company Number: US-BAUSCHBL-2025BNL032529

PATIENT
  Age: 70 Year
  Sex: Male

DRUGS (1)
  1. ERYTHROMYCIN [Suspect]
     Active Substance: ERYTHROMYCIN
     Indication: Routine health maintenance
     Route: 047

REACTIONS (3)
  - Eye pain [Unknown]
  - Visual impairment [Unknown]
  - Product quality issue [Unknown]
